FAERS Safety Report 12600553 (Version 2)
Quarter: 2016Q3

REPORT INFORMATION
  Report Type: Report from Study
  Country: DE (occurrence: DE)
  Receive Date: 20160727
  Receipt Date: 20160808
  Transmission Date: 20161109
  Serious: Yes (Other)
  Sender: FDA-Public Use
  Company Number: PHHY2016DE101289

PATIENT
  Sex: Female
  Weight: 60 kg

DRUGS (13)
  1. METFORMIN [Concomitant]
     Active Substance: METFORMIN HYDROCHLORIDE
     Indication: DIABETES MELLITUS
     Dosage: 2 DF (2-0-0), QD
     Route: 065
  2. SYREA [Concomitant]
     Active Substance: HYDROXYUREA
     Indication: PRIMARY MYELOFIBROSIS
     Dosage: 500 MG, QOD (ONE DOSE EVERY 2 DAYS)
     Route: 065
     Dates: start: 20160201
  3. JAKAFI [Concomitant]
     Active Substance: RUXOLITINIB
     Indication: MYELOFIBROSIS
  4. SYREA [Concomitant]
     Active Substance: HYDROXYUREA
     Indication: MYELOFIBROSIS
  5. DESFERAL [Suspect]
     Active Substance: DEFEROXAMINE MESYLATE
     Dosage: 20 MG/KG PER DAY (100 ML PER DAY / 5 INFUSIONS PER WEEK)
     Route: 041
     Dates: start: 20160704, end: 20160713
  6. EXFORGE [Concomitant]
     Active Substance: AMLODIPINE BESYLATE\VALSARTAN
     Indication: HYPERTENSION
     Dosage: 320 MG, QD (1X1 PER DAY)
     Route: 065
  7. SIMVASTATIN. [Concomitant]
     Active Substance: SIMVASTATIN
     Indication: HYPERCHOLESTEROLAEMIA
     Dosage: 10 MG, QD (1X1 PER DAY)
     Route: 065
  8. DESFERAL [Suspect]
     Active Substance: DEFEROXAMINE MESYLATE
     Dosage: UNK
  9. PREDNISOLONE. [Concomitant]
     Active Substance: PREDNISOLONE
     Indication: ASTHMA
     Dosage: 5 MG, QD (1X1 PER DAY)
     Route: 065
  10. DESFERAL [Suspect]
     Active Substance: DEFEROXAMINE MESYLATE
     Indication: IRON OVERLOAD
     Dosage: 20 MG/KG PER DAY (100 ML PER DAY / 5 INFUSIONS PER WEEK)
     Route: 041
     Dates: start: 20160517, end: 20160629
  11. CIPROFLOXACIN. [Concomitant]
     Active Substance: CIPROFLOXACIN
     Indication: PYREXIA
     Dosage: 2 DF (1-0-1), QD
     Route: 065
     Dates: start: 20160629, end: 20160704
  12. JAKAFI [Concomitant]
     Active Substance: RUXOLITINIB
     Indication: PRIMARY MYELOFIBROSIS
     Dosage: 5 MG, QD
     Route: 065
     Dates: start: 20150211
  13. SPIRONOLACTON [Concomitant]
     Active Substance: SPIRONOLACTONE
     Indication: CHRONIC KIDNEY DISEASE
     Dosage: 0.5 DF, QD
     Route: 065

REACTIONS (3)
  - Nausea [Recovered/Resolved]
  - Vomiting [Recovered/Resolved]
  - Xanthopsia [Recovered/Resolved]

NARRATIVE: CASE EVENT DATE: 20160716
